FAERS Safety Report 7920028 (Version 4)
Quarter: 2013Q2

REPORT INFORMATION
  Report Type: Spontaneous
  Country: US (occurrence: US)
  Receive Date: 20110429
  Receipt Date: 20130508
  Transmission Date: 20140414
  Serious: Yes (Hospitalization)
  Sender: FDA-Public Use
  Company Number: US-BAYER-2011-032954

PATIENT
  Age: 19 Year
  Sex: Female
  Weight: 53.52 kg

DRUGS (8)
  1. YAZ [Suspect]
     Indication: ACNE
     Dosage: UNK
     Dates: start: 200901, end: 20091128
  2. YAZ [Suspect]
     Indication: ACNE
  3. YAZ [Suspect]
     Indication: ACNE
  4. CYCLOBENZAPRINE [Concomitant]
     Dosage: 10 MG, UNK
     Route: 048
  5. IBUPROFEN [Concomitant]
     Dosage: 800 MG, UNK
     Route: 048
     Dates: start: 20091012
  6. OXYCODONE/APAP [Concomitant]
     Dosage: UNK
     Route: 048
     Dates: start: 20091014
  7. MOTRIN [Concomitant]
     Indication: MUSCULOSKELETAL PAIN
     Dosage: UNK
     Dates: start: 200910
  8. ZOFRAN [Concomitant]
     Indication: NAUSEA

REACTIONS (6)
  - Deep vein thrombosis [None]
  - Thrombosis [None]
  - Pulmonary embolism [None]
  - Pain [None]
  - Vena cava thrombosis [None]
  - Pelvic venous thrombosis [None]
